FAERS Safety Report 6333838-4 (Version None)
Quarter: 2009Q3

REPORT INFORMATION
  Report Type: 
  Country: None (occurrence: None)
  Receive Date: 20090829
  Receipt Date: 20090610
  Transmission Date: 20100115
  Serious: No
  Sender: FDA-Public Use
  Company Number: US-ABBOTT-09P-163-0579073-OO

PATIENT
  Sex: Female
  Weight: 123.03 kg

DRUGS (8)
  1. SIMCOR [Suspect]
     Indication: CHEST DISCOMFORT
     Dosage: 500/20 MG X2 TAKEN AT BEDTIME
     Dates: start: 20090601
  2. SEROQUEL [Concomitant]
     Indication: DRUG USE FOR UNKNOWN INDICATION
  3. SYMLIN [Concomitant]
     Indication: DRUG USE FOR UNKNOWN INDICATION
  4. TRILEPTAL [Concomitant]
     Indication: DRUG USE FOR UNKNOWN INDICATION
  5. KLONOPIN [Concomitant]
     Indication: DRUG USE FOR UNKNOWN INDICATION
  6. ZOLOFT [Concomitant]
     Indication: DRUG USE FOR UNKNOWN INDICATION
  7. LASIX [Concomitant]
     Indication: DRUG USE FOR UNKNOWN INDICATION
  8. NOVOLOG [Concomitant]
     Indication: DRUG USE FOR UNKNOWN INDICATION

REACTIONS (3)
  - FEELING HOT [None]
  - FLUSHING [None]
  - PARAESTHESIA [None]
